FAERS Safety Report 20945853 (Version 1)
Quarter: 2022Q2

REPORT INFORMATION
  Report Type: Spontaneous
  Country: FR (occurrence: FR)
  Receive Date: 20220610
  Receipt Date: 20220610
  Transmission Date: 20220721
  Serious: Yes (Life-Threatening, Other)
  Sender: FDA-Public Use
  Company Number: None

PATIENT
  Age: 72 Year
  Sex: Female

DRUGS (1)
  1. VERAPAMIL HYDROCHLORIDE [Suspect]
     Active Substance: VERAPAMIL HYDROCHLORIDE
     Indication: Supraventricular tachycardia
     Dosage: 360 MILLIGRAM, QD
     Route: 048
     Dates: end: 20220421

REACTIONS (3)
  - Cardio-respiratory arrest [Recovered/Resolved]
  - Atrioventricular block complete [Recovered/Resolved with Sequelae]
  - Cardioactive drug level above therapeutic [Recovered/Resolved]

NARRATIVE: CASE EVENT DATE: 20220421
